FAERS Safety Report 8513957-4 (Version None)
Quarter: 2012Q3

REPORT INFORMATION
  Report Type: 
  Country: None (occurrence: None)
  Receive Date: 20120717
  Receipt Date: 20120712
  Transmission Date: 20120928
  Serious: Yes (Hospitalization)
  Sender: FDA-Public Use
  Company Number: 2012SP001945

PATIENT
  Age: 55 Year
  Sex: Male

DRUGS (8)
  1. LATUDA [Suspect]
     Route: 048
     Dates: start: 20120101, end: 20120701
  2. DEPAKOTE [Concomitant]
     Indication: PRODUCT USED FOR UNKNOWN INDICATION
  3. LATUDA [Suspect]
     Route: 048
     Dates: start: 20120101, end: 20120701
  4. ALL OTHER THERAPEUTIC PRODUCTS [Concomitant]
     Indication: LIPIDS ABNORMAL
  5. ANTIPSYCHOTICS [Concomitant]
     Indication: SCHIZOPHRENIA
     Dates: end: 20120101
  6. LATUDA [Suspect]
     Indication: SCHIZOPHRENIA
     Route: 048
     Dates: start: 20120701
  7. LATUDA [Suspect]
     Indication: PSYCHOTIC DISORDER
     Route: 048
     Dates: start: 20120701
  8. ANTIHYPERTENSIVES [Concomitant]
     Indication: BLOOD PRESSURE

REACTIONS (2)
  - AGGRESSION [None]
  - SCHIZOPHRENIA [None]
